FAERS Safety Report 12239313 (Version 3)
Quarter: 2016Q2

REPORT INFORMATION
  Report Type: Spontaneous
  Country: US (occurrence: US)
  Receive Date: 20160405
  Receipt Date: 20160525
  Transmission Date: 20160815
  Serious: No
  Sender: FDA-Public Use
  Company Number: US-TEVA-642942ACC

PATIENT
  Age: 24 Year
  Sex: Female
  Weight: 59.02 kg

DRUGS (1)
  1. PARAGARD T 380A [Suspect]
     Active Substance: COPPER
     Indication: CONTRACEPTION
     Dates: start: 20150109

REACTIONS (4)
  - Breast mass [Unknown]
  - Skin texture abnormal [Unknown]
  - Device expulsion [Not Recovered/Not Resolved]
  - Breast fibrosis [Unknown]

NARRATIVE: CASE EVENT DATE: 201507
